FAERS Safety Report 5513194-1 (Version None)
Quarter: 2007Q4

REPORT INFORMATION
  Report Type: 
  Country: None (occurrence: None)
  Receive Date: 20071112
  Receipt Date: 20071102
  Transmission Date: 20080405
  Serious: Yes (Hospitalization)
  Sender: FDA-Public Use
  Company Number: BD-ABBOTT-07P-012-0423253-00

PATIENT
  Age: 7 Year
  Sex: Male

DRUGS (4)
  1. EPILIM CHRONO TABLETS [Suspect]
     Indication: HEADACHE
     Route: 048
  2. EPILIM CHRONO TABLETS [Suspect]
     Indication: VOMITING
  3. NAPROXEN [Suspect]
     Indication: HEADACHE
     Route: 048
     Dates: start: 20070901
  4. RANITIDINE [Suspect]
     Indication: ABDOMINAL PAIN UPPER
     Route: 048
     Dates: start: 20070901

REACTIONS (3)
  - BURNING SENSATION [None]
  - ERYTHEMA [None]
  - MOUTH ULCERATION [None]
